FAERS Safety Report 23420509 (Version 1)
Quarter: 2024Q1

REPORT INFORMATION
  Report Type: Report from Study
  Country: BR (occurrence: BR)
  Receive Date: 20240119
  Receipt Date: 20240119
  Transmission Date: 20240409
  Serious: Yes (Other)
  Sender: FDA-Public Use
  Company Number: BR-JNJFOC-20240141067

PATIENT
  Age: 50 Year
  Sex: Female
  Weight: 100 kg

DRUGS (2)
  1. SIMPONI [Suspect]
     Active Substance: GOLIMUMAB
     Indication: Ankylosing spondylitis
     Route: 058
     Dates: start: 20230725
  2. SIMPONI [Suspect]
     Active Substance: GOLIMUMAB

REACTIONS (4)
  - Ankylosing spondylitis [Not Recovered/Not Resolved]
  - Illness [Unknown]
  - Viral infection [Recovering/Resolving]
  - Foot fracture [Unknown]

NARRATIVE: CASE EVENT DATE: 20231215
